FAERS Safety Report 14930506 (Version 2)
Quarter: 2018Q2

REPORT INFORMATION
  Report Type: Spontaneous
  Country: US (occurrence: US)
  Receive Date: 20180523
  Receipt Date: 20180629
  Transmission Date: 20180711
  Serious: No
  Sender: FDA-Public Use
  Company Number: US-009507513-1805USA003666

PATIENT
  Age: 17 Year
  Sex: Female
  Weight: 65.31 kg

DRUGS (2)
  1. NEXPLANON [Suspect]
     Active Substance: ETONOGESTREL
     Indication: CONTRACEPTION
     Dosage: 68 MG, CONTINOUS
     Route: 059
     Dates: start: 20180508, end: 20180508
  2. NEXPLANON [Suspect]
     Active Substance: ETONOGESTREL
     Dosage: UNK
     Dates: start: 20180508

REACTIONS (7)
  - Product quality issue [Unknown]
  - Device difficult to use [Recovered/Resolved]
  - Perforation [Unknown]
  - Device deployment issue [Recovered/Resolved]
  - Device kink [Recovered/Resolved]
  - Skin injury [Unknown]
  - Complication of device insertion [Recovered/Resolved]

NARRATIVE: CASE EVENT DATE: 20180508
